FAERS Safety Report 13376390 (Version 5)
Quarter: 2020Q2

REPORT INFORMATION
  Report Type: Spontaneous
  Country: US (occurrence: US)
  Receive Date: 20170328
  Receipt Date: 20200406
  Transmission Date: 20200713
  Serious: No
  Sender: FDA-Public Use
  Company Number: US-PFIZER INC-2017127487

PATIENT
  Age: 70 Year
  Sex: Female
  Weight: 75 kg

DRUGS (4)
  1. ADVIL LIQUI-GELS [Suspect]
     Active Substance: IBUPROFEN
     Dosage: UNK
  2. ADVIL LIQUI-GELS [Suspect]
     Active Substance: IBUPROFEN
     Dosage: 200 MG, 1X/DAY (IN THE MORNING BY MOUTH AT 10AM)
     Route: 048
  3. ADVIL LIQUI-GELS [Suspect]
     Active Substance: IBUPROFEN
     Dosage: UNK, 1X/DAY [TAKING ADVIL FOR HER SCIATICA ONCE A DAY]
  4. ADVIL LIQUI-GELS [Suspect]
     Active Substance: IBUPROFEN
     Indication: SCIATICA
     Dosage: UNK, DAILY

REACTIONS (4)
  - Tinnitus [Unknown]
  - Body height decreased [Unknown]
  - Weight decreased [Unknown]
  - Intentional product misuse [Unknown]
